FAERS Safety Report 24039624 (Version 2)
Quarter: 2024Q3

REPORT INFORMATION
  Report Type: Spontaneous
  Country: RO (occurrence: RO)
  Receive Date: 20240702
  Receipt Date: 20240720
  Transmission Date: 20241017
  Serious: Yes (Hospitalization, Other)
  Sender: AUROBINDO
  Company Number: RO-MEDO2008-000921

PATIENT
  Age: 29 Year
  Sex: Female

DRUGS (1)
  1. METFORMIN [Suspect]
     Active Substance: METFORMIN HYDROCHLORIDE
     Indication: Diabetes mellitus
     Dosage: UNK
     Route: 065

REACTIONS (7)
  - Polydipsia [Unknown]
  - Hyperglycaemia [Unknown]
  - Dry mouth [Unknown]
  - Weight decreased [Unknown]
  - Polyuria [Unknown]
  - Diabetic ketoacidosis [Unknown]
  - Therapeutic product effect incomplete [Unknown]
